FAERS Safety Report 8565624 (Version 3)
Quarter: 2012Q4

REPORT INFORMATION
  Report Type: 
  Country: LV (occurrence: LV)
  Receive Date: 20120516
  Receipt Date: 20120919
  Transmission Date: 20130627
  Serious: Yes (Other)
  Sender: FDA-Public Use
  Company Number: LV-GLAXOSMITHKLINE-B0800289A

PATIENT
  Age: 42 Year
  Sex: Female
  Weight: 95 kg

DRUGS (3)
  1. TROBALT [Suspect]
     Indication: PARTIAL SEIZURES
     Dosage: 50MG Three times per day
     Route: 048
     Dates: start: 20120228, end: 20120323
  2. ABSENOR [Concomitant]
     Indication: EPILEPSY
     Dosage: 300MG Twice per day
     Route: 048
     Dates: start: 20090430
  3. PHENHYDAN [Concomitant]
     Indication: EPILEPSY
     Dosage: 100MG Twice per day
     Route: 048
     Dates: start: 20110921

REACTIONS (8)
  - Hallucination, visual [Recovered/Resolved]
  - Epilepsy [Recovered/Resolved]
  - Loss of consciousness [Unknown]
  - Psychomotor hyperactivity [Recovered/Resolved]
  - Agitation [Recovered/Resolved]
  - Incoherent [Recovered/Resolved]
  - Urinary incontinence [Unknown]
  - Faecal incontinence [Unknown]
